FAERS Safety Report 25908860 (Version 1)
Quarter: 2025Q4

REPORT INFORMATION
  Report Type: Report from Study
  Country: GB (occurrence: GB)
  Receive Date: 20251011
  Receipt Date: 20251011
  Transmission Date: 20260117
  Serious: Yes (Hospitalization, Other)
  Sender: ABBVIE
  Company Number: GB-ABBVIE-6493970

PATIENT
  Age: 68 Year
  Sex: Male

DRUGS (1)
  1. FOSCARBIDOPA\FOSLEVODOPA [Suspect]
     Active Substance: FOSCARBIDOPA\FOSLEVODOPA
     Indication: Parkinson^s disease
     Dosage: DOSE: 7 X PRODUODOPA 240MG/ML + 12MG/ML
     Route: 058
     Dates: start: 20250811

REACTIONS (6)
  - Hospitalisation [Recovered/Resolved]
  - Catheter site infection [Unknown]
  - Sepsis [Unknown]
  - Encephalitis [Unknown]
  - Fall [Unknown]
  - Cerebral disorder [Not Recovered/Not Resolved]

NARRATIVE: CASE EVENT DATE: 20250101
